FAERS Safety Report 5320428-5 (Version None)
Quarter: 2007Q1

REPORT INFORMATION
  Report Type: 
  Country: None (occurrence: None)
  Receive Date: 20070220
  Receipt Date: 20061207
  Transmission Date: 20070707
  Serious: No
  Sender: FDA-Public Use
  Company Number: WAES0612USA01325

PATIENT
  Age: 50 Year
  Sex: Female

DRUGS (2)
  1. JANUVIA [Suspect]
     Indication: DIABETES MELLITUS NON-INSULIN-DEPENDENT
     Dosage: SEE IMAGE
     Route: 048
     Dates: start: 20061130, end: 20061201
  2. JANUVIA [Suspect]
     Indication: DIABETES MELLITUS NON-INSULIN-DEPENDENT
     Dosage: SEE IMAGE
     Route: 048
     Dates: start: 20061201

REACTIONS (1)
  - HYPOGLYCAEMIA [None]
